FAERS Safety Report 17241966 (Version 1)
Quarter: 2019Q4

REPORT INFORMATION
  Report Type: Spontaneous
  Country: US (occurrence: US)
  Receive Date: 20191212
  Receipt Date: 20191212
  Transmission Date: 20200122
  Serious: Yes (Hospitalization)
  Sender: FDA-Public Use
  Company Number: None

PATIENT
  Age: 8 Month
  Sex: Female
  Weight: 11.64 kg

DRUGS (10)
  1. CYTARABINE. [Suspect]
     Active Substance: CYTARABINE
  2. METHOTREXATE. [Suspect]
     Active Substance: METHOTREXATE
  3. PREDNISONE. [Suspect]
     Active Substance: PREDNISONE
  4. DEXAMETHASONE. [Suspect]
     Active Substance: DEXAMETHASONE
  5. HYDROCORTISONE. [Suspect]
     Active Substance: HYDROCORTISONE
  6. VINCRISTINE SULFATE. [Suspect]
     Active Substance: VINCRISTINE SULFATE
  7. DAUNORUBICIN [Suspect]
     Active Substance: DAUNORUBICIN
  8. VANCOMYCIN [Concomitant]
     Active Substance: VANCOMYCIN
  9. ONCASPAR [Suspect]
     Active Substance: PEGASPARGASE
  10. GENTAMYCIN [Concomitant]
     Active Substance: GENTAMICIN

REACTIONS (14)
  - Hyperglycaemia [None]
  - Lipase increased [None]
  - Shock haemorrhagic [None]
  - Parainfluenzae virus infection [None]
  - Sepsis [None]
  - Urinary tract infection pseudomonal [None]
  - Anal ulcer [None]
  - Leukopenia [None]
  - Disseminated intravascular coagulation [None]
  - Haematemesis [None]
  - Mouth haemorrhage [None]
  - Neutropenia [None]
  - Acute kidney injury [None]
  - Anal haemorrhage [None]

NARRATIVE: CASE EVENT DATE: 20191029
